FAERS Safety Report 4494343-3 (Version None)
Quarter: 2004Q4

REPORT INFORMATION
  Report Type: 
  Country: None (occurrence: None)
  Receive Date: 20041102
  Receipt Date: 20041015
  Transmission Date: 20050328
  Serious: Yes (Disabling)
  Sender: FDA-Public Use
  Company Number: GBS041015772

PATIENT
  Age: 69 Year
  Sex: Female
  Weight: 70 kg

DRUGS (5)
  1. FORTEO [Suspect]
     Indication: OSTEOPOROSIS
     Dosage: 20 UG DAY
     Dates: start: 20040201, end: 20040930
  2. AMITRIPTYLINE [Concomitant]
  3. PREGABALIN [Concomitant]
  4. VIOXX [Concomitant]
  5. CARDURA [Concomitant]

REACTIONS (2)
  - BONE PAIN [None]
  - DIFFICULTY IN WALKING [None]
